FAERS Safety Report 10429986 (Version 4)
Quarter: 2015Q2

REPORT INFORMATION
  Report Type: Spontaneous
  Country: US (occurrence: US)
  Receive Date: 20140904
  Receipt Date: 20150617
  Transmission Date: 20150821
  Serious: Yes (Other)
  Sender: FDA-Public Use
  Company Number: US-BAYER-2014-129195

PATIENT
  Age: 28 Year
  Sex: Female

DRUGS (7)
  1. MIRENA [Suspect]
     Active Substance: LEVONORGESTREL
     Dosage: 20 MCG/24HR, CONT
     Route: 015
     Dates: start: 20081113, end: 20100810
  2. LEVORA [Concomitant]
     Active Substance: ETHINYL ESTRADIOL\LEVONORGESTREL
  3. ORTHO-NOVUM 777 [Concomitant]
     Active Substance: ETHINYL ESTRADIOL\NORETHINDRONE
  4. IBUPROFEN. [Concomitant]
     Active Substance: IBUPROFEN
     Dosage: UNK
     Dates: start: 20100810
  5. ALBUTEROL. [Concomitant]
     Active Substance: ALBUTEROL
     Dosage: PRN
     Dates: start: 20100810
  6. MICRONOR [Concomitant]
     Active Substance: NORETHINDRONE
  7. CELEXA [Concomitant]
     Active Substance: CITALOPRAM HYDROBROMIDE
     Dosage: 40 MG, QD
     Dates: start: 20100810

REACTIONS (4)
  - Uterine perforation [None]
  - Pelvic pain [None]
  - Emotional distress [None]
  - Injury [None]

NARRATIVE: CASE EVENT DATE: 20100809
